FAERS Safety Report 13031675 (Version 1)
Quarter: 2016Q4

REPORT INFORMATION
  Report Type: Spontaneous
  Country: IT (occurrence: IT)
  Receive Date: 20161215
  Receipt Date: 20161215
  Transmission Date: 20170207
  Serious: Yes (Death, Hospitalization)
  Sender: FDA-Public Use
  Company Number: IT-SA-2016SA223451

PATIENT
  Age: 55 Year
  Sex: Male

DRUGS (9)
  1. METHOTREXATE. [Concomitant]
     Active Substance: METHOTREXATE
     Indication: PROPHYLAXIS AGAINST GRAFT VERSUS HOST DISEASE
     Dates: start: 201011
  2. FLUDARABINE PHOSPHATE. [Suspect]
     Active Substance: FLUDARABINE PHOSPHATE
     Indication: BONE MARROW CONDITIONING REGIMEN
     Route: 065
     Dates: start: 201011
  3. ANTITHYMOCYTE IMMUNOGLOBULIN [Concomitant]
     Active Substance: THYMOCYTE IMMUNE GLOBULIN NOS
     Indication: BONE MARROW CONDITIONING REGIMEN
     Dosage: DELIVERED ON DAYS -3 AND -2
     Dates: start: 201011
  4. METHYLPREDNISOLONE. [Suspect]
     Active Substance: METHYLPREDNISOLONE
     Indication: PROPHYLAXIS AGAINST GRAFT VERSUS HOST DISEASE
     Route: 065
     Dates: start: 201101
  5. CYCLOSPORIN [Suspect]
     Active Substance: CYCLOSPORINE
     Indication: PROPHYLAXIS AGAINST GRAFT VERSUS HOST DISEASE
     Route: 065
     Dates: start: 201011, end: 20101226
  6. CYCLOSPORIN [Suspect]
     Active Substance: CYCLOSPORINE
     Indication: PROPHYLAXIS AGAINST GRAFT VERSUS HOST DISEASE
     Route: 065
     Dates: start: 201101
  7. METHYLPREDNISOLONE. [Suspect]
     Active Substance: METHYLPREDNISOLONE
     Indication: PROPHYLAXIS AGAINST GRAFT VERSUS HOST DISEASE
     Route: 065
     Dates: start: 20101226
  8. MYCOPHENOLATE MOFETIL. [Suspect]
     Active Substance: MYCOPHENOLATE MOFETIL
     Indication: PROPHYLAXIS AGAINST GRAFT VERSUS HOST DISEASE
     Route: 065
     Dates: start: 20101226
  9. THIOTEPA. [Concomitant]
     Active Substance: THIOTEPA
     Indication: BONE MARROW CONDITIONING REGIMEN
     Dosage: FOR TWO DOSES
     Dates: start: 201011

REACTIONS (20)
  - Hypoaesthesia [Fatal]
  - Visual impairment [Fatal]
  - Cognitive disorder [Fatal]
  - Acute graft versus host disease in intestine [Recovering/Resolving]
  - Neurotoxicity [Fatal]
  - Off label use [Unknown]
  - Blindness [Not Recovered/Not Resolved]
  - Nuclear magnetic resonance imaging brain abnormal [Fatal]
  - Paraplegia [Fatal]
  - Loss of proprioception [Fatal]
  - Altered state of consciousness [Fatal]
  - Toxic leukoencephalopathy [Fatal]
  - Brain oedema [Fatal]
  - Acute graft versus host disease in liver [Fatal]
  - Sensorimotor disorder [Fatal]
  - Delirium [Fatal]
  - Acute graft versus host disease in skin [Recovering/Resolving]
  - Drug ineffective [Unknown]
  - Hepatic failure [Fatal]
  - Confusional state [Fatal]

NARRATIVE: CASE EVENT DATE: 20101225
